FAERS Safety Report 11370278 (Version 2)
Quarter: 2016Q1

REPORT INFORMATION
  Report Type: Spontaneous
  Country: IT (occurrence: IT)
  Receive Date: 20150812
  Receipt Date: 20160115
  Transmission Date: 20160525
  Serious: Yes (Other)
  Sender: FDA-Public Use
  Company Number: IT-JNJFOC-20150806891

PATIENT
  Age: 51 Year
  Sex: Male
  Weight: 70 kg

DRUGS (2)
  1. REMICADE [Suspect]
     Active Substance: INFLIXIMAB
     Indication: ANKYLOSING SPONDYLITIS
     Dosage: 3-5 MG/KG/BODY WEIGHT AT 0,2,6 WEEKS AND EVERY 4 WEEKS THEREAFTER FOR A 5-YEAR PERIOD.
     Route: 042
     Dates: start: 200509, end: 201112
  2. METHOTREXATE [Concomitant]
     Active Substance: METHOTREXATE
     Route: 065
     Dates: start: 2004, end: 2011

REACTIONS (1)
  - Testicular seminoma (pure) [Unknown]

NARRATIVE: CASE EVENT DATE: 20111201
